FAERS Safety Report 6684757-5 (Version None)
Quarter: 2010Q2

REPORT INFORMATION
  Report Type: 
  Country: None (occurrence: None)
  Receive Date: 20100416
  Receipt Date: 20100405
  Transmission Date: 20101027
  Serious: Yes (Other)
  Sender: FDA-Public Use
  Company Number: US-JNJCH-2010008663

PATIENT
  Age: 20 Year
  Sex: Female

DRUGS (2)
  1. BENADRYL [Suspect]
     Indication: DRUG USE FOR UNKNOWN INDICATION
     Dosage: TEXT:ONE PER NIGHT
     Route: 048
  2. NASAL PREPARATIONS [Suspect]
     Indication: DRUG USE FOR UNKNOWN INDICATION
     Dosage: TEXT:UNSPECIFIED
     Route: 065

REACTIONS (4)
  - ORAL DISCOMFORT [None]
  - SOMNOLENCE [None]
  - STOMATITIS [None]
  - WRONG TECHNIQUE IN DRUG USAGE PROCESS [None]
